FAERS Safety Report 23150582 (Version 1)
Quarter: 2023Q4

REPORT INFORMATION
  Report Type: Spontaneous
  Country: CN (occurrence: CN)
  Receive Date: 20231106
  Receipt Date: 20231106
  Transmission Date: 20240109
  Serious: Yes (Hospitalization)
  Sender: FDA-Public Use
  Company Number: CN-CMSSWKJ-2023CMSSWKJ000685

PATIENT
  Age: 70 Year
  Sex: Male
  Weight: 90 kg

DRUGS (2)
  1. AETHOXYSKLEROL [Suspect]
     Active Substance: POLIDOCANOL
     Indication: Varicose vein
     Route: 042
     Dates: start: 20231018, end: 20231018
  2. Nadroparin Calcium Injection (GYZZ H20223791) (GYZZ H20223791) [Concomitant]
     Indication: Thrombosis prophylaxis
     Dosage: 0.6 ML ONCE DAILY
     Route: 058
     Dates: start: 20231018, end: 20231021

REACTIONS (3)
  - Inflammation [Recovering/Resolving]
  - Swelling [Recovering/Resolving]
  - Erythema [Recovering/Resolving]

NARRATIVE: CASE EVENT DATE: 20231024
